FAERS Safety Report 8107519-0 (Version None)
Quarter: 2011Q4

REPORT INFORMATION
  Report Type: 
  Country: None (occurrence: None)
  Receive Date: 20111223
  Receipt Date: 20101227
  Transmission Date: 20120403
  Serious: Yes (Hospitalization)
  Sender: FDA-Public Use
  Company Number: 320722

PATIENT
  Age: 73 Year
  Sex: Female
  Weight: 59 kg

DRUGS (5)
  1. LEVEMIR [Suspect]
     Indication: DIABETES MELLITUS
     Dosage: 42 U, BID
  2. PLAVIX [Concomitant]
  3. AZOR /00595201/ (ALPRAZOLAM) [Concomitant]
  4. BYSTOLIC [Concomitant]
  5. WELCHOL [Concomitant]

REACTIONS (5)
  - BLOOD GLUCOSE FLUCTUATION [None]
  - ABDOMINAL PAIN [None]
  - VOMITING [None]
  - BLOOD GLUCOSE DECREASED [None]
  - NAUSEA [None]
